FAERS Safety Report 18139280 (Version 1)
Quarter: 2020Q3

REPORT INFORMATION
  Report Type: Spontaneous
  Country: US (occurrence: US)
  Receive Date: 20200811
  Receipt Date: 20200811
  Transmission Date: 20201103
  Serious: Yes (Life-Threatening)
  Sender: FDA-Public Use
  Company Number: None

PATIENT
  Age: 70 Year
  Sex: Female
  Weight: 83.91 kg

DRUGS (1)
  1. METFORMIN [Suspect]
     Active Substance: METFORMIN HYDROCHLORIDE
     Indication: DIABETES MELLITUS
     Dosage: ?          QUANTITY:2 PILLS;?
     Route: 048
     Dates: start: 20200512, end: 20200518

REACTIONS (11)
  - Middle insomnia [None]
  - Headache [None]
  - Abdominal pain upper [None]
  - Gait inability [None]
  - Abdominal discomfort [None]
  - Tremor [None]
  - Muscular weakness [None]
  - Diarrhoea [None]
  - Product contamination [None]
  - Nausea [None]
  - Gait disturbance [None]

NARRATIVE: CASE EVENT DATE: 20200512
